FAERS Safety Report 4949426-8 (Version None)
Quarter: 2006Q1

REPORT INFORMATION
  Report Type: 
  Country: None (occurrence: None)
  Receive Date: 20060315
  Receipt Date: 20060306
  Transmission Date: 20060701
  Serious: Yes (Disabling, Other)
  Sender: FDA-Public Use
  Company Number: 2006032619

PATIENT
  Sex: Female
  Weight: 87.0906 kg

DRUGS (5)
  1. LIPITOR [Suspect]
     Indication: BLOOD CHOLESTEROL INCREASED
     Dosage: 20 MG (20 MG, 1 IN 1 D), UNKNOWN
     Route: 065
  2. TOPROL-XL [Concomitant]
  3. LOTREL [Concomitant]
  4. ALL OTHER THERAPEUTIC PRODUCTS (ALL OTHER THERAPEUTIC PRODUCTS) [Concomitant]
  5. VITAMINS (VITAMINS) [Concomitant]

REACTIONS (8)
  - DEPRESSION [None]
  - ECONOMIC PROBLEM [None]
  - INTERVERTEBRAL DISC PROTRUSION [None]
  - MENTAL DISORDER [None]
  - MOVEMENT DISORDER [None]
  - NERVE INJURY [None]
  - PROCEDURAL COMPLICATION [None]
  - SELF-INJURIOUS IDEATION [None]
